FAERS Safety Report 9832316 (Version 2)
Quarter: 2014Q1

REPORT INFORMATION
  Report Type: Report from Study
  Country: NL (occurrence: NL)
  Receive Date: 20140121
  Receipt Date: 20140121
  Transmission Date: 20141002
  Serious: Yes (Death, Hospitalization)
  Sender: FDA-Public Use
  Company Number: NL-SA-CAMP-1002589

PATIENT
  Age: 66 Year
  Sex: Male
  Weight: 71 kg

DRUGS (9)
  1. ALEMTUZUMAB [Suspect]
     Indication: T-CELL LYMPHOMA
     Dosage: 30 MG, QD
     Route: 058
     Dates: start: 20121123, end: 20121123
  2. CYCLOPHOSPHAMIDE [Suspect]
     Indication: T-CELL LYMPHOMA
     Dosage: 1430 MG, QD
     Route: 042
     Dates: start: 20121123, end: 20121123
  3. DOXORUBICIN [Suspect]
     Indication: T-CELL LYMPHOMA
     Dosage: 95 MG, QD
     Route: 042
     Dates: start: 20121123, end: 20121123
  4. VINCRISTINE [Suspect]
     Indication: T-CELL LYMPHOMA
     Dosage: 1 MG, QD
     Route: 042
     Dates: start: 20121116, end: 20121116
  5. PREDNISONE [Suspect]
     Indication: T-CELL LYMPHOMA
     Dosage: 100 MG, QD
     Route: 048
     Dates: start: 20121116, end: 20121120
  6. PEGFILGRASTIM [Suspect]
     Indication: T-CELL LYMPHOMA
     Dosage: 6 MG, QD
     Route: 059
     Dates: start: 20121124, end: 20121124
  7. VALACICLOVIR [Concomitant]
     Indication: PROPHYLAXIS
     Dosage: 500 MG, BID
     Route: 048
     Dates: start: 20121123
  8. SULFAMETHOXAZOLE/TRIMETHOPRIM [Concomitant]
     Indication: PROPHYLAXIS
     Dosage: 960 MG, BID (3 TIMES A WEEK)
     Route: 048
     Dates: start: 20121123
  9. TINZAPARIN [Concomitant]
     Indication: PROPHYLAXIS
     Dosage: 14000 IU, QD
     Route: 059
     Dates: start: 20121115, end: 20121125

REACTIONS (6)
  - Lactic acidosis [Fatal]
  - Hepatic enzyme increased [Not Recovered/Not Resolved]
  - Groin pain [Not Recovered/Not Resolved]
  - White blood cell count increased [Not Recovered/Not Resolved]
  - Dehydration [Not Recovered/Not Resolved]
  - Anaemia [Not Recovered/Not Resolved]
